FAERS Safety Report 17979574 (Version 11)
Quarter: 2020Q4

REPORT INFORMATION
  Report Type: Report from Study
  Country: NL (occurrence: NL)
  Receive Date: 20200703
  Receipt Date: 20201228
  Transmission Date: 20210113
  Serious: Yes (Death, Hospitalization)
  Sender: FDA-Public Use
  Company Number: NL-ROCHE-2631167

PATIENT
  Age: 72 Year
  Sex: Female
  Weight: 60.3 kg

DRUGS (20)
  1. SIMVASTATINE [Concomitant]
     Active Substance: SIMVASTATIN
     Route: 048
     Dates: start: 20200626, end: 20200629
  2. METOPROLOL. [Concomitant]
     Active Substance: METOPROLOL
     Route: 048
     Dates: start: 20181114
  3. COLECALCIFEROL [Concomitant]
     Active Substance: CHOLECALCIFEROL
     Route: 048
     Dates: start: 20170208
  4. CALCIUM CARBONATE. [Concomitant]
     Active Substance: CALCIUM CARBONATE
     Route: 048
     Dates: start: 20170207
  5. SODIUM BICARBONATE. [Concomitant]
     Active Substance: SODIUM BICARBONATE
     Indication: RENAL TUBULAR ACIDOSIS
     Route: 048
     Dates: start: 20190806
  6. OMEPRAZOL [Concomitant]
     Active Substance: OMEPRAZOLE
     Indication: RENAL TUBULAR ACIDOSIS
     Route: 048
     Dates: start: 20191025, end: 20200618
  7. THYRAX [Concomitant]
     Active Substance: LEVOTHYROXINE
     Route: 048
     Dates: start: 20160608
  8. METOPROLOL. [Concomitant]
     Active Substance: METOPROLOL
     Indication: VENTRICULAR EXTRASYSTOLES
     Route: 048
     Dates: start: 20160915, end: 20181113
  9. ACETYLSALICYLIC ACID [Concomitant]
     Active Substance: ASPIRIN
     Route: 048
     Dates: start: 20160915, end: 20170724
  10. METOPROLOL SUCCINATE. [Concomitant]
     Active Substance: METOPROLOL SUCCINATE
     Dates: start: 20181113
  11. PARACETAMOL [Concomitant]
     Active Substance: ACETAMINOPHEN
     Route: 048
     Dates: start: 20170706
  12. SIMVASTATINE [Concomitant]
     Active Substance: SIMVASTATIN
     Indication: BLOOD CHOLESTEROL INCREASED
     Route: 048
     Dates: start: 20190108
  13. ONDANSETRON [Concomitant]
     Active Substance: ONDANSETRON
     Indication: NAUSEA
     Route: 048
     Dates: start: 20180201
  14. ACETYLSALICYLIC ACID [Concomitant]
     Active Substance: ASPIRIN
     Route: 048
     Dates: start: 20170802
  15. LOPERAMIDE [Concomitant]
     Active Substance: LOPERAMIDE
     Indication: NAUSEA
     Route: 048
     Dates: start: 20180201
  16. OMEPRAZOL [Concomitant]
     Active Substance: OMEPRAZOLE
     Route: 048
     Dates: start: 20200626, end: 20200629
  17. UREA. [Concomitant]
     Active Substance: UREA
     Route: 061
     Dates: start: 20161213
  18. ATEZOLIZUMAB. [Suspect]
     Active Substance: ATEZOLIZUMAB
     Indication: MALIGNANT URINARY TRACT NEOPLASM
     Dosage: DOSAGE FORM: 60 MG/ML; LAST DOSE PRIOR TO SAE/AESI ON 26/MAY/2020
     Route: 041
     Dates: start: 20170718, end: 20200616
  19. PARACETAMOL [Concomitant]
     Active Substance: ACETAMINOPHEN
     Dosage: 4,000; 500 TABLET
     Route: 048
     Dates: start: 20170915, end: 20170915
  20. SIMVASTATINE [Concomitant]
     Active Substance: SIMVASTATIN
     Indication: RENAL IMPAIRMENT
     Route: 048
     Dates: end: 20200618

REACTIONS (2)
  - Death [Fatal]
  - Renal impairment [Not Recovered/Not Resolved]

NARRATIVE: CASE EVENT DATE: 20200616
